FAERS Safety Report 4587913-5 (Version None)
Quarter: 2005Q1

REPORT INFORMATION
  Report Type: 
  Country: None (occurrence: None)
  Receive Date: 20050219
  Receipt Date: 20050209
  Transmission Date: 20050727
  Serious: Yes (Hospitalization, Other)
  Sender: FDA-Public Use
  Company Number: PHNU2005DE00926

PATIENT
  Sex: Male

DRUGS (3)
  1. CLOZARIL [Suspect]
     Dosage: LOW DOSAGES
     Route: 048
     Dates: start: 19690101, end: 20050101
  2. ZOPLICONE [Suspect]
     Route: 048
  3. FLUOXETINE [Suspect]
     Route: 048

REACTIONS (6)
  - CONFUSIONAL STATE [None]
  - DELIRIUM [None]
  - LEUKOCYTOSIS [None]
  - MEMORY IMPAIRMENT [None]
  - PERSONALITY CHANGE [None]
  - SOCIAL AVOIDANT BEHAVIOUR [None]
